FAERS Safety Report 8193125-9 (Version None)
Quarter: 2012Q1

REPORT INFORMATION
  Report Type: 
  Country: None (occurrence: None)
  Receive Date: 20120308
  Receipt Date: 20120308
  Transmission Date: 20120608
  Serious: Yes (Life-Threatening, Other)
  Sender: FDA-Public Use
  Company Number: None

PATIENT
  Age: 30 Year
  Sex: Female
  Weight: 88.45 kg

DRUGS (1)
  1. BENZONATATE [Suspect]
     Indication: COUGH
     Route: 048
     Dates: start: 20120307, end: 20120311

REACTIONS (2)
  - FEELING ABNORMAL [None]
  - DYSGEUSIA [None]
